FAERS Safety Report 9604066 (Version 1)
Quarter: 2013Q4

REPORT INFORMATION
  Report Type: Spontaneous
  Country: CH (occurrence: CH)
  Receive Date: 20131008
  Receipt Date: 20131008
  Transmission Date: 20140711
  Serious: Yes (Hospitalization, Other)
  Sender: FDA-Public Use
  Company Number: CH-009507513-1309CHE012580

PATIENT
  Age: 95 Year
  Sex: Male

DRUGS (6)
  1. COSAAR + COSAAR 50 [Suspect]
     Indication: HYPERTENSION
     Dosage: 50 MG, QD
     Route: 048
     Dates: end: 20130625
  2. FUROSEMIDE\SPIRONOLACTONE [Suspect]
     Indication: HYPERTENSION
     Dosage: 50/20 MG, ONCE DAILY
     Route: 048
     Dates: end: 20130625
  3. CORDARONE [Concomitant]
     Indication: HYPERTENSION
     Dosage: 200 MG, QD
     Route: 048
  4. PLAVIX [Concomitant]
     Indication: HYPERTENSION
     Dosage: 75 MG, QD
     Route: 048
  5. NEURONTIN [Concomitant]
     Indication: HYPERTENSION
     Dosage: 100 MG, TID
     Route: 048
  6. PRADIF T [Concomitant]
     Indication: HYPERTENSION
     Dosage: 400 MICROGRAM , ONCE DAILY
     Route: 048

REACTIONS (3)
  - Altered state of consciousness [Recovering/Resolving]
  - Renal failure acute [Recovering/Resolving]
  - Orthostatic hypotension [Recovered/Resolved]
